FAERS Safety Report 10726976 (Version 2)
Quarter: 2015Q2

REPORT INFORMATION
  Report Type: Spontaneous
  Country: GB (occurrence: GB)
  Receive Date: 20150121
  Receipt Date: 20150615
  Transmission Date: 20150821
  Serious: Yes (Death, Hospitalization, Other)
  Sender: FDA-Public Use
  Company Number: GB-UCBSA-2015001089

PATIENT
  Age: 38 Year
  Sex: Female
  Weight: 75 kg

DRUGS (9)
  1. VIMPAT [Suspect]
     Active Substance: LACOSAMIDE
     Indication: SEIZURE
     Dosage: 100 MG, 2X/DAY (BID)
     Route: 048
     Dates: start: 20130213, end: 2013
  2. ADRENALINE [Concomitant]
     Active Substance: EPINEPHRINE
     Indication: PRODUCT USED FOR UNKNOWN INDICATION
     Dosage: UNK
     Dates: start: 20130713
  3. ACYCLOVIR. [Concomitant]
     Active Substance: ACYCLOVIR
     Indication: PRODUCT USED FOR UNKNOWN INDICATION
     Dosage: UNK
     Dates: start: 20130713
  4. NOREPINEPHRINE [Concomitant]
     Active Substance: NOREPINEPHRINE\NOREPINEPHRINE BITARTRATE
     Indication: PRODUCT USED FOR UNKNOWN INDICATION
     Dosage: UNK
     Dates: start: 20130713
  5. LEVETIRACETAM. [Concomitant]
     Active Substance: LEVETIRACETAM
     Indication: EPILEPSY
     Dosage: 1G + 250 MG, 2X/DAY (BID)
     Route: 048
     Dates: start: 20130423, end: 2013
  6. LEVETIRACETAM. [Concomitant]
     Active Substance: LEVETIRACETAM
     Dosage: 1500 MG AM + 750MG PM, 2X/DAY (BID)
     Dates: start: 2013
  7. ZOPICLONE [Concomitant]
     Active Substance: ZOPICLONE
     Indication: INSOMNIA
     Dosage: 3.75 TABLET, ONCE DAILY (QD)
     Route: 048
     Dates: start: 20130318
  8. DIAZEPAM. [Concomitant]
     Active Substance: DIAZEPAM
     Indication: PRODUCT USED FOR UNKNOWN INDICATION
     Dosage: UNK
     Dates: start: 20130713
  9. VIMPAT [Suspect]
     Active Substance: LACOSAMIDE
     Dosage: 150 MG
     Dates: start: 2013

REACTIONS (17)
  - Temporal lobe epilepsy [Unknown]
  - Visual brightness [Unknown]
  - Disseminated intravascular coagulation [Fatal]
  - Status epilepticus [Fatal]
  - Feeling abnormal [Unknown]
  - Partial seizures [Unknown]
  - Head injury [Unknown]
  - Multi-organ failure [Fatal]
  - Epilepsy [Fatal]
  - Generalised tonic-clonic seizure [Unknown]
  - Liver disorder [Unknown]
  - Visual impairment [Unknown]
  - Ventricular tachycardia [Unknown]
  - Intentional underdose [Unknown]
  - Fatigue [Unknown]
  - Heat stroke [Fatal]
  - Fall [Fatal]

NARRATIVE: CASE EVENT DATE: 2013
